FAERS Safety Report 11031893 (Version 1)
Quarter: 2015Q2

REPORT INFORMATION
  Report Type: Spontaneous
  Country: IT (occurrence: IT)
  Receive Date: 20150415
  Receipt Date: 20150415
  Transmission Date: 20150821
  Serious: Yes (Life-Threatening)
  Sender: FDA-Public Use
  Company Number: IT-GLAXOSMITHKLINE INC.-IT2015GSK046863

PATIENT
  Age: 80 Year
  Sex: Female

DRUGS (7)
  1. DIURESIX [Concomitant]
     Active Substance: TORSEMIDE
     Dosage: 5 MG, UNK
  2. SOTALOL HYDROCHLORIDE. [Concomitant]
     Active Substance: SOTALOL HYDROCHLORIDE
     Dosage: 160 MG, UNK
  3. AUGMENTIN [Suspect]
     Active Substance: AMOXICILLIN\CLAVULANATE POTASSIUM
     Indication: BRONCHITIS
     Dosage: 2 G, QD
     Route: 048
     Dates: start: 20150312, end: 20150319
  4. COUMADIN [Suspect]
     Active Substance: WARFARIN SODIUM
     Indication: CEREBROVASCULAR ACCIDENT PROPHYLAXIS
     Dosage: 17.5 MG, QD
     Route: 048
     Dates: start: 20070124, end: 20150326
  5. ADRONAT [Concomitant]
     Active Substance: ALENDRONATE SODIUM
  6. FLUSPIRAL [Suspect]
     Active Substance: FLUTICASONE PROPIONATE
     Indication: ASTHMA
     Dosage: 2 ML, QD
     Route: 055
     Dates: start: 20150312, end: 20150319
  7. SIVASTIN [Concomitant]
     Active Substance: SIMVASTATIN

REACTIONS (1)
  - International normalised ratio increased [Recovered/Resolved]

NARRATIVE: CASE EVENT DATE: 20150327
